FAERS Safety Report 12803748 (Version 1)
Quarter: 2016Q4

REPORT INFORMATION
  Report Type: Spontaneous
  Country: JP (occurrence: JP)
  Receive Date: 20161003
  Receipt Date: 20161003
  Transmission Date: 20170207
  Serious: Yes (Other)
  Sender: FDA-Public Use
  Company Number: JP-EISAI MEDICAL RESEARCH-EC-2016-020853

PATIENT
  Sex: Female

DRUGS (2)
  1. HALAVEN [Suspect]
     Active Substance: ERIBULIN MESYLATE
     Indication: UNDIFFERENTIATED SARCOMA
     Route: 041
     Dates: start: 20160826, end: 20160902
  2. ROPION [Suspect]
     Active Substance: FLURBIPROFEN AXETIL
     Indication: PYREXIA
     Dosage: UNKNOWN
     Route: 065
     Dates: end: 201609

REACTIONS (1)
  - Acute kidney injury [Recovered/Resolved]

NARRATIVE: CASE EVENT DATE: 20160909
